FAERS Safety Report 15419008 (Version 1)
Quarter: 2018Q3

REPORT INFORMATION
  Report Type: Spontaneous
  Country: JP (occurrence: JP)
  Receive Date: 20180924
  Receipt Date: 20180924
  Transmission Date: 20181010
  Serious: Yes (Death, Life-Threatening, Hospitalization)
  Sender: FDA-Public Use
  Company Number: JP-ELI_LILLY_AND_COMPANY-JP201809007994

PATIENT
  Age: 65 Year
  Sex: Female

DRUGS (2)
  1. ABRAXANE [Concomitant]
     Active Substance: PACLITAXEL
     Route: 042
  2. CYRAMZA [Suspect]
     Active Substance: RAMUCIRUMAB
     Indication: PRODUCT USED FOR UNKNOWN INDICATION
     Dosage: UNK
     Route: 041

REACTIONS (1)
  - Gastrointestinal perforation [Fatal]
